FAERS Safety Report 4982867-1 (Version None)
Quarter: 2006Q2

REPORT INFORMATION
  Report Type: 
  Country: None (occurrence: None)
  Receive Date: 20060420
  Receipt Date: 20060413
  Transmission Date: 20061013
  Serious: Yes (Death, Other)
  Sender: FDA-Public Use
  Company Number: USA-2006-0024001

PATIENT
  Age: 38 Year
  Sex: Male

DRUGS (6)
  1. OXYCONTIN [Suspect]
     Indication: PAIN
     Dosage: 80 MG, BID, UNKNOWN
     Route: 065
  2. NEURONTIN [Concomitant]
  3. NORTRIPTYLINE (NORTRIPTYLINE) [Concomitant]
  4. AVALIDE [Concomitant]
  5. METHADONE HCL [Concomitant]
  6. ZANAFLEX [Concomitant]

REACTIONS (8)
  - ANOXIA [None]
  - ASTHMA [None]
  - COMA [None]
  - DYSPNOEA [None]
  - INTENTIONAL DRUG MISUSE [None]
  - OVERDOSE [None]
  - PNEUMONIA ASPIRATION [None]
  - VOMITING [None]
